FAERS Safety Report 24933480 (Version 1)
Quarter: 2025Q1

REPORT INFORMATION
  Report Type: Spontaneous
  Country: US (occurrence: US)
  Receive Date: 20250206
  Receipt Date: 20250206
  Transmission Date: 20250409
  Serious: No
  Sender: ROCHE
  Company Number: US-ROCHE-10000195567

PATIENT
  Sex: Male

DRUGS (9)
  1. ESBRIET [Suspect]
     Active Substance: PIRFENIDONE
     Indication: Idiopathic pulmonary fibrosis
     Route: 048
  2. PREDNISONE [Concomitant]
     Active Substance: PREDNISONE
     Route: 048
  3. ATORVASTATIN [Concomitant]
     Active Substance: ATORVASTATIN
     Route: 048
  4. ELIQUIS [Concomitant]
     Active Substance: APIXABAN
     Route: 048
  5. FINASTERIDE [Concomitant]
     Active Substance: FINASTERIDE
     Route: 048
  6. FUROSEMIDE [Concomitant]
     Active Substance: FUROSEMIDE
     Route: 048
  7. METOPROLOL [Concomitant]
     Active Substance: METOPROLOL
     Route: 048
  8. PANTOPRAZOLE [Concomitant]
     Active Substance: PANTOPRAZOLE
     Route: 048
  9. POTASSIUM CHLORIDE [Concomitant]
     Active Substance: POTASSIUM CHLORIDE
     Route: 048

REACTIONS (2)
  - Balance disorder [Unknown]
  - Cough [Unknown]
